FAERS Safety Report 8080299-3 (Version None)
Quarter: 2012Q1

REPORT INFORMATION
  Report Type: 
  Country: None (occurrence: None)
  Receive Date: 20120130
  Receipt Date: 20120124
  Transmission Date: 20120608
  Serious: Yes (Hospitalization)
  Sender: FDA-Public Use
  Company Number: US-JNJFOC-20120110403

PATIENT
  Sex: Male

DRUGS (16)
  1. RITUXIMAB [Suspect]
     Indication: NON-HODGKIN'S LYMPHOMA
     Route: 042
     Dates: start: 20110907
  2. CIPROFLOXACIN [Concomitant]
     Route: 065
  3. VORICONAZOLE [Concomitant]
     Route: 065
  4. NEULASTA [Suspect]
     Indication: PRODUCT USED FOR UNKNOWN INDICATION
     Route: 058
  5. LEUCOVORIN CALCIUM [Suspect]
     Indication: PRODUCT USED FOR UNKNOWN INDICATION
     Route: 048
  6. MESNA [Suspect]
     Indication: NON-HODGKIN'S LYMPHOMA
     Route: 065
  7. DOXORUBICIN HCL [Suspect]
     Indication: NON-HODGKIN'S LYMPHOMA
     Route: 042
  8. VINCRISTINE [Suspect]
     Indication: NON-HODGKIN'S LYMPHOMA
     Route: 065
  9. FLUCONAZOLE [Concomitant]
     Route: 065
  10. PROTONIX [Concomitant]
     Route: 065
  11. VALTREX [Concomitant]
     Route: 065
  12. METHOTREXATE [Suspect]
     Indication: NON-HODGKIN'S LYMPHOMA
     Route: 048
  13. CYTARABINE [Suspect]
     Indication: NON-HODGKIN'S LYMPHOMA
     Route: 042
  14. DEXAMETHASONE [Suspect]
     Indication: NON-HODGKIN'S LYMPHOMA
     Route: 048
  15. CYCLOPHOSPHAMIDE [Suspect]
     Indication: NON-HODGKIN'S LYMPHOMA
     Route: 065
  16. MEDROL [Concomitant]
     Route: 065

REACTIONS (6)
  - ANAEMIA [None]
  - PNEUMONIA [None]
  - NEUTROPENIA [None]
  - FATIGUE [None]
  - SYNCOPE [None]
  - HYPOTENSION [None]
